FAERS Safety Report 5308707-9 (Version None)
Quarter: 2007Q2

REPORT INFORMATION
  Report Type: 
  Country: None (occurrence: None)
  Receive Date: 20070426
  Receipt Date: 20070416
  Transmission Date: 20071010
  Serious: Yes (Congenital Anomaly)
  Sender: FDA-Public Use
  Company Number: FR-GLAXOSMITHKLINE-B0467751A

PATIENT

DRUGS (1)
  1. ZOPHREN [Suspect]
     Indication: VOMITING IN PREGNANCY

REACTIONS (5)
  - ABORTION INDUCED [None]
  - CONGENITAL GENITAL MALFORMATION [None]
  - CONGENITAL MUSCULOSKELETAL ANOMALY [None]
  - DRUG EXPOSURE DURING PREGNANCY [None]
  - KIDNEY MALFORMATION [None]
